FAERS Safety Report 5366254-2 (Version None)
Quarter: 2007Q2

REPORT INFORMATION
  Report Type: 
  Country: None (occurrence: None)
  Receive Date: 20070619
  Receipt Date: 20070619
  Transmission Date: 20071010
  Serious: Yes (Hospitalization)
  Sender: FDA-Public Use
  Company Number: None

PATIENT
  Age: 19 Year
  Sex: Male
  Weight: 78.4 kg

DRUGS (1)
  1. ACETYLSALICYLIC ACID SRT [Suspect]
     Indication: SUICIDE ATTEMPT
     Dosage: 20 TABS ONCE PO    10 TABS ONCE
     Route: 048
     Dates: start: 20070301

REACTIONS (6)
  - INCORRECT DOSE ADMINISTERED [None]
  - NAUSEA [None]
  - SUICIDAL IDEATION [None]
  - SUICIDE ATTEMPT [None]
  - TINNITUS [None]
  - VOMITING [None]
